FAERS Safety Report 8352093-7 (Version None)
Quarter: 2012Q2

REPORT INFORMATION
  Report Type: 
  Country: None (occurrence: None)
  Receive Date: 20120511
  Receipt Date: 20120430
  Transmission Date: 20120825
  Serious: Yes (Hospitalization, Other)
  Sender: FDA-Public Use
  Company Number: US-JNJFOC-20120504014

PATIENT
  Age: 90 Year
  Sex: Female

DRUGS (2)
  1. IBUPROFEN [Suspect]
     Indication: PRODUCT USED FOR UNKNOWN INDICATION
     Route: 065
  2. CORDARONE [Concomitant]
     Indication: CARDIAC DISORDER
     Route: 065
     Dates: start: 20060101

REACTIONS (5)
  - DIZZINESS [None]
  - HYPERSENSITIVITY [None]
  - BLINDNESS [None]
  - MALAISE [None]
  - SWOLLEN TONGUE [None]
